FAERS Safety Report 7262751-3 (Version None)
Quarter: 2011Q1

REPORT INFORMATION
  Report Type: 
  Country: None (occurrence: None)
  Receive Date: 20110130
  Receipt Date: 20101227
  Transmission Date: 20110831
  Serious: No
  Sender: FDA-Public Use
  Company Number: US-ABBOTT-10P-163-0666037-00

PATIENT
  Age: 52 Year
  Sex: Female
  Weight: 113.5 kg

DRUGS (7)
  1. AVAPRO [Concomitant]
     Indication: PRODUCT USED FOR UNKNOWN INDICATION
     Dosage: DAILY DOSE: 150MG
  2. HUMIRA [Suspect]
     Indication: PSORIASIS
  3. HUMIRA [Suspect]
     Indication: PUSTULAR PSORIASIS
     Dates: start: 20100601, end: 20101001
  4. FUROSEMIDE [Concomitant]
     Indication: PRODUCT USED FOR UNKNOWN INDICATION
     Dosage: DAILY DOSE: 40MG
  5. ASEPRO [Concomitant]
     Indication: PRODUCT USED FOR UNKNOWN INDICATION
     Route: 045
  6. HUMIRA [Suspect]
     Indication: PSORIATIC ARTHROPATHY
  7. FOLIC ACID [Concomitant]
     Indication: PRODUCT USED FOR UNKNOWN INDICATION
     Dosage: DAILY DOSE: 1MG

REACTIONS (7)
  - RHINORRHOEA [None]
  - NASAL CONGESTION [None]
  - SINUSITIS [None]
  - SINUS HEADACHE [None]
  - SINUS CONGESTION [None]
  - NASAL MUCOSAL DISCOLOURATION [None]
  - COUGH [None]
